FAERS Safety Report 5112479-0 (Version None)
Quarter: 2006Q3

REPORT INFORMATION
  Report Type: 
  Country: None (occurrence: None)
  Receive Date: 20060919
  Receipt Date: 20060911
  Transmission Date: 20061208
  Serious: Yes (Hospitalization, Other)
  Sender: FDA-Public Use
  Company Number: 2006109874

PATIENT
  Age: 34 Year
  Sex: Male

DRUGS (3)
  1. ZOLOFT [Suspect]
     Indication: DRUG USE FOR UNKNOWN INDICATION
     Dosage: 50 MG (UNKNOWN), ORAL
     Route: 048
     Dates: start: 20040402, end: 20040424
  2. CLOZAPINE [Suspect]
     Indication: SCHIZOPHRENIA, PARANOID TYPE
     Dosage: 600 MG (200 MG, 3 IN 1 D), ORAL
     Route: 048
     Dates: start: 20040325
  3. LORAZEPAM [Suspect]
     Dosage: 0.5 MG (UNKNOWN), ORAL
     Route: 048
     Dates: start: 20040414

REACTIONS (2)
  - DRUG INTERACTION [None]
  - GRAND MAL CONVULSION [None]
